FAERS Safety Report 21199554 (Version 7)
Quarter: 2025Q3

REPORT INFORMATION
  Report Type: Spontaneous
  Country: EU (occurrence: EU)
  Receive Date: 20220811
  Receipt Date: 20250801
  Transmission Date: 20251020
  Serious: Yes (Death, Life-Threatening, Hospitalization, Other)
  Sender: NOVARTIS
  Company Number: EU-NOVARTISPH-NVSC2022DE180004

PATIENT
  Age: 40 Year
  Sex: Female

DRUGS (35)
  1. MYCOPHENOLATE MOFETIL [Suspect]
     Active Substance: MYCOPHENOLATE MOFETIL
     Indication: Prophylaxis against graft versus host disease
     Dosage: 2 G, QD
     Route: 065
  2. MYCOPHENOLATE MOFETIL [Suspect]
     Active Substance: MYCOPHENOLATE MOFETIL
     Indication: Acute myeloid leukaemia
  3. CYCLOSPORINE [Suspect]
     Active Substance: CYCLOSPORINE
     Indication: Prophylaxis against graft versus host disease
     Route: 065
  4. CYCLOSPORINE [Suspect]
     Active Substance: CYCLOSPORINE
     Indication: Acute myeloid leukaemia
  5. CYCLOSPORINE [Suspect]
     Active Substance: CYCLOSPORINE
     Indication: Immunosuppression
  6. CYCLOSPORINE [Suspect]
     Active Substance: CYCLOSPORINE
     Indication: Graft versus host disease
  7. SORAFENIB [Suspect]
     Active Substance: SORAFENIB
     Indication: Acute myeloid leukaemia
     Route: 065
  8. SORAFENIB [Suspect]
     Active Substance: SORAFENIB
     Indication: Graft versus host disease
  9. AZACITIDINE [Suspect]
     Active Substance: AZACITIDINE
     Indication: Acute myeloid leukaemia
     Route: 065
  10. AZACITIDINE [Suspect]
     Active Substance: AZACITIDINE
     Indication: Graft versus host disease
  11. FLUDARABINE PHOSPHATE [Suspect]
     Active Substance: FLUDARABINE PHOSPHATE
     Indication: Bone marrow conditioning regimen
     Route: 065
  12. FLUDARABINE PHOSPHATE [Suspect]
     Active Substance: FLUDARABINE PHOSPHATE
     Indication: Acute myeloid leukaemia
  13. FLUDARABINE PHOSPHATE [Suspect]
     Active Substance: FLUDARABINE PHOSPHATE
     Indication: Graft versus host disease
  14. FLUDARABINE PHOSPHATE [Suspect]
     Active Substance: FLUDARABINE PHOSPHATE
     Indication: Allogenic stem cell transplantation
  15. PREDNISOLONE [Suspect]
     Active Substance: PREDNISOLONE
     Indication: Prophylaxis against graft versus host disease
     Route: 065
  16. MELPHALAN [Suspect]
     Active Substance: MELPHALAN
     Indication: Bone marrow conditioning regimen
     Route: 065
  17. MELPHALAN [Suspect]
     Active Substance: MELPHALAN
     Indication: Graft versus host disease
  18. MELPHALAN [Suspect]
     Active Substance: MELPHALAN
     Indication: Acute myeloid leukaemia
  19. MELPHALAN [Suspect]
     Active Substance: MELPHALAN
     Indication: Allogenic stem cell transplantation
  20. CARMUSTINE [Suspect]
     Active Substance: CARMUSTINE
     Indication: Bone marrow conditioning regimen
     Route: 065
  21. CARMUSTINE [Suspect]
     Active Substance: CARMUSTINE
     Indication: Acute myeloid leukaemia
     Route: 065
  22. CARMUSTINE [Suspect]
     Active Substance: CARMUSTINE
     Indication: Graft versus host disease
     Route: 065
  23. CARMUSTINE [Suspect]
     Active Substance: CARMUSTINE
     Indication: Acute myeloid leukaemia
     Route: 065
  24. CARMUSTINE [Suspect]
     Active Substance: CARMUSTINE
     Indication: Allogenic stem cell transplantation
  25. CARMUSTINE [Suspect]
     Active Substance: CARMUSTINE
     Indication: Allogenic stem cell transplantation
  26. THYMOGLOBULINE [Suspect]
     Active Substance: LAPINE T-LYMPHOCYTE IMMUNE GLOBULIN
     Indication: Graft versus host disease
     Route: 065
  27. VENETOCLAX [Suspect]
     Active Substance: VENETOCLAX
     Indication: Acute myeloid leukaemia
     Route: 065
  28. VENETOCLAX [Suspect]
     Active Substance: VENETOCLAX
     Indication: Graft versus host disease
     Route: 065
  29. VENETOCLAX [Suspect]
     Active Substance: VENETOCLAX
     Indication: Acute myeloid leukaemia
     Route: 065
  30. VENETOCLAX [Suspect]
     Active Substance: VENETOCLAX
     Route: 065
  31. THYMOCYTE IMMUNE GLOBULIN NOS [Suspect]
     Active Substance: THYMOCYTE IMMUNE GLOBULIN NOS
     Indication: Acute myeloid leukaemia
     Route: 065
  32. THYMOCYTE IMMUNE GLOBULIN NOS [Suspect]
     Active Substance: THYMOCYTE IMMUNE GLOBULIN NOS
     Indication: Allogenic stem cell transplantation
  33. THYMOCYTE IMMUNE GLOBULIN NOS [Suspect]
     Active Substance: THYMOCYTE IMMUNE GLOBULIN NOS
     Indication: Bone marrow conditioning regimen
  34. GILTERITINIB [Suspect]
     Active Substance: GILTERITINIB
     Indication: Acute myeloid leukaemia
     Route: 065
  35. GILTERITINIB [Suspect]
     Active Substance: GILTERITINIB
     Indication: Graft versus host disease

REACTIONS (13)
  - Adenoviral hepatitis [Fatal]
  - Adenovirus infection [Fatal]
  - Tachycardia [Fatal]
  - Multiple organ dysfunction syndrome [Fatal]
  - Febrile neutropenia [Fatal]
  - Pneumonia adenoviral [Fatal]
  - Septic shock [Fatal]
  - Respiratory failure [Fatal]
  - Acute kidney injury [Fatal]
  - Leukopenia [Fatal]
  - Pyrexia [Fatal]
  - Coagulopathy [Unknown]
  - Product use in unapproved indication [Unknown]
